FAERS Safety Report 8386827-2 (Version None)
Quarter: 2012Q2

REPORT INFORMATION
  Report Type: 
  Country: None (occurrence: None)
  Receive Date: 20120525
  Receipt Date: 20120515
  Transmission Date: 20120825
  Serious: Yes (Other)
  Sender: FDA-Public Use
  Company Number: NO-VALEANT-2012VX002298

PATIENT

DRUGS (6)
  1. ONDANSETRON [Concomitant]
     Route: 065
  2. DEXAMETHASONE [Concomitant]
     Route: 065
  3. THERAPEUTIC RADIOPHARMACEUTICALS [Suspect]
     Route: 065
  4. METOCLOPRAMIDE [Concomitant]
     Route: 065
  5. CISPLATIN [Suspect]
     Route: 042
  6. FLUOROURACIL [Suspect]
     Route: 042

REACTIONS (1)
  - OESOPHAGITIS [None]
